FAERS Safety Report 10177201 (Version 1)
Quarter: 2014Q2

REPORT INFORMATION
  Report Type: Spontaneous
  Country: US (occurrence: None)
  Receive Date: 20140416
  Receipt Date: 20140416
  Transmission Date: 20141212
  Serious: Yes (Hospitalization)
  Sender: FDA-Public Use
  Company Number: 163-POMAL-14011999

PATIENT
  Age: 76 Year
  Sex: Female
  Weight: 81.6 kg

DRUGS (13)
  1. POMALYST (POMALIDOMIDE) (3 MILLIGRAM, CAPSULES) [Suspect]
     Indication: PLASMA CELL MYELOMA
     Dosage: 3 MG, 21 IN 28 D, PO
     Route: 048
     Dates: start: 20130531
  2. ARANESP (DARBEPOETIN ALFA) (UNKNOWN) [Concomitant]
  3. DIGESTIVE PROBIOTIC (UNKNOWN) [Concomitant]
  4. ASPIRIN (UNKNOWN) [Concomitant]
  5. GABAPENTIN (GABAPENTIN) (UNKNOWN) (GABAPENTIN) [Concomitant]
  6. SYNTHROID (LEVOTHYROXINE SODIUM) (UNKNOWN) [Concomitant]
  7. LIPITOR (ATORVASTATIN) (UNKNOWN) [Concomitant]
  8. SINGULAIR (UNKNOWN) [Concomitant]
  9. DEXAMETHASONE (DEXAMETHASONE) (UNKNOWN) [Concomitant]
  10. VALACYCLOVIR (VALACICLOVIR HYDORCHLORIDE) (UNKNOWN) [Concomitant]
  11. NOVOLOG FLEXPEN (UNKNOWN) [Concomitant]
  12. GLIMEPIRIDE (GLIMEPIRIDE) (UNKNOWN) [Concomitant]
  13. OXYCODONE AND ACETAMINOPHEN (OXYCOCET) (UNKNOWN) [Concomitant]

REACTIONS (1)
  - Pneumonia viral [None]
